FAERS Safety Report 19713033 (Version 2)
Quarter: 2022Q4

REPORT INFORMATION
  Report Type: Report from Study
  Country: US (occurrence: US)
  Receive Date: 20210817
  Receipt Date: 20221026
  Transmission Date: 20230112
  Serious: Yes (Other)
  Sender: FDA-Public Use
  Company Number: US-JAZZ-2021-US-006255

PATIENT
  Age: 24 Year
  Sex: Female

DRUGS (8)
  1. XYREM [Suspect]
     Active Substance: SODIUM OXYBATE
     Indication: Narcolepsy
     Dosage: 2.25 GRAM, BID
     Route: 048
     Dates: start: 201905, end: 201905
  2. XYREM [Suspect]
     Active Substance: SODIUM OXYBATE
     Indication: Cataplexy
     Dosage: DOSE ADJUSTMENT
     Route: 048
     Dates: start: 201905, end: 202101
  3. XYREM [Suspect]
     Active Substance: SODIUM OXYBATE
     Indication: Somnolence
     Dosage: 4 GRAM, BID
     Route: 048
     Dates: start: 202101, end: 202103
  4. PROZAC [Concomitant]
     Active Substance: FLUOXETINE HYDROCHLORIDE
     Dosage: UNK
     Dates: start: 20190730
  5. PROPRANOLOL [Concomitant]
     Active Substance: PROPRANOLOL HYDROCHLORIDE
     Dosage: UNK
     Dates: start: 20190901
  6. MAGNESIUM [Concomitant]
     Active Substance: MAGNESIUM
     Dosage: UNK
     Dates: start: 20190701
  7. CROMOLYN SODIUM [Concomitant]
     Active Substance: CROMOLYN SODIUM
     Dosage: UNK
     Dates: start: 20201013
  8. CETIRIZINE HCL [Concomitant]
     Active Substance: CETIRIZINE HYDROCHLORIDE
     Dosage: UNK
     Dates: start: 20200913

REACTIONS (2)
  - Psychotic disorder [Recovering/Resolving]
  - Suicidal ideation [Recovering/Resolving]

NARRATIVE: CASE EVENT DATE: 20210504
